FAERS Safety Report 4883321-8 (Version None)
Quarter: 2006Q1

REPORT INFORMATION
  Report Type: 
  Country: None (occurrence: None)
  Receive Date: 20060118
  Receipt Date: 20060116
  Transmission Date: 20060701
  Serious: Yes (Other)
  Sender: FDA-Public Use
  Company Number: US-GLAXOSMITHKLINE-A0589418A

PATIENT
  Sex: Male

DRUGS (1)
  1. ADVAIR DISKUS 250/50 [Suspect]
     Indication: ASTHMA
     Route: 055

REACTIONS (2)
  - HYPERTHYROIDISM [None]
  - WEIGHT DECREASED [None]
